FAERS Safety Report 9639169 (Version 1)
Quarter: 2013Q4

REPORT INFORMATION
  Report Type: Spontaneous
  Country: IT (occurrence: IT)
  Receive Date: 20131022
  Receipt Date: 20131022
  Transmission Date: 20140711
  Serious: Yes (Other)
  Sender: FDA-Public Use
  Company Number: PHHY2013IT115128

PATIENT
  Sex: Female

DRUGS (1)
  1. AMOXICILLIN + CLAVULANATE POTASSIUM [Suspect]
     Indication: BRONCHITIS
     Dosage: 2 U, QD
     Route: 048
     Dates: start: 20120628, end: 20120629

REACTIONS (2)
  - Presyncope [Recovering/Resolving]
  - Nausea [Recovering/Resolving]
